FAERS Safety Report 18040578 (Version 1)
Quarter: 2020Q3

REPORT INFORMATION
  Report Type: Spontaneous
  Country: US (occurrence: US)
  Receive Date: 20200717
  Receipt Date: 20200717
  Transmission Date: 20201103
  Serious: No
  Sender: FDA-Public Use
  Company Number: US-ROCHE-2600470

PATIENT
  Age: 12 Year
  Sex: Male
  Weight: 37.68 kg

DRUGS (1)
  1. HEMLIBRA [Suspect]
     Active Substance: EMICIZUMAB-KXWH
     Indication: FACTOR VIII DEFICIENCY
     Dosage: 60MG/0.4ML SDV INJ
     Route: 058
     Dates: start: 20200127

REACTIONS (4)
  - Intentional product use issue [Unknown]
  - Off label use [Unknown]
  - Injection site pain [Unknown]
  - Rash pruritic [Unknown]

NARRATIVE: CASE EVENT DATE: 20200421
